FAERS Safety Report 6579443-6 (Version None)
Quarter: 2010Q1

REPORT INFORMATION
  Report Type: 
  Country: None (occurrence: None)
  Receive Date: 20100212
  Receipt Date: 20100209
  Transmission Date: 20100710
  Serious: Yes (Hospitalization)
  Sender: FDA-Public Use
  Company Number: US-BRISTOL-MYERS SQUIBB COMPANY-14969711

PATIENT
  Sex: Male

DRUGS (2)
  1. ABILIFY [Suspect]
     Indication: SCHIZOAFFECTIVE DISORDER
     Dosage: STARTED WITH 15MG THEN INCREASED TO 20MG[6NOV09]+30MG[31DEC09]
  2. ARICEPT [Suspect]
     Dates: start: 20091106

REACTIONS (1)
  - SCHIZOAFFECTIVE DISORDER [None]
